FAERS Safety Report 4768447-1 (Version None)
Quarter: 2005Q3

REPORT INFORMATION
  Report Type: 
  Country: None (occurrence: None)
  Receive Date: 20050914
  Receipt Date: 20050718
  Transmission Date: 20060218
  Serious: Yes (Death)
  Sender: FDA-Public Use
  Company Number: CO-ABBOTT-05P-036-0306551-00

PATIENT
  Age: 36 Year
  Sex: Male

DRUGS (1)
  1. SEVORANE LIQUID FOR INHALATION [Suspect]
     Indication: DRUG USE FOR UNKNOWN INDICATION
     Dosage: NOT REPORTED
     Route: 055
     Dates: start: 20050717, end: 20050717

REACTIONS (4)
  - ANAPHYLACTIC SHOCK [None]
  - CARDIOPULMONARY FAILURE [None]
  - DRUG INEFFECTIVE [None]
  - PHARMACEUTICAL PRODUCT COUNTERFEIT [None]
